FAERS Safety Report 20160263 (Version 1)
Quarter: 2021Q4

REPORT INFORMATION
  Report Type: Spontaneous
  Country: CZ (occurrence: CZ)
  Receive Date: 20211208
  Receipt Date: 20211208
  Transmission Date: 20220303
  Serious: Yes (Other)
  Sender: FDA-Public Use
  Company Number: None

PATIENT
  Age: 42 Year
  Sex: Female

DRUGS (2)
  1. CLOZAPINE [Suspect]
     Active Substance: CLOZAPINE
     Indication: Schizoaffective disorder
  2. OLANZAPINE [Concomitant]
     Active Substance: OLANZAPINE
     Indication: Schizoaffective disorder

REACTIONS (5)
  - Venous thrombosis [Unknown]
  - Blunted affect [Unknown]
  - Hallucination, auditory [Unknown]
  - Salivary hypersecretion [Unknown]
  - Fear of disease [Unknown]
